FAERS Safety Report 9285946 (Version 1)
Quarter: 2013Q2

REPORT INFORMATION
  Report Type: Spontaneous
  Country: US (occurrence: None)
  Receive Date: 20130510
  Receipt Date: 20130510
  Transmission Date: 20140414
  Serious: Yes (Hospitalization, Other)
  Sender: FDA-Public Use
  Company Number: None

PATIENT
  Age: 67 Year
  Sex: Female
  Weight: 91.63 kg

DRUGS (1)
  1. LISLNOP/ HCTZ [Suspect]
     Indication: HYPERTENSION
     Dosage: 2 TABLETS DAILY
     Dates: start: 20120321

REACTIONS (3)
  - Abasia [None]
  - Local swelling [None]
  - Local swelling [None]
